FAERS Safety Report 10070100 (Version 4)
Quarter: 2014Q2

REPORT INFORMATION
  Report Type: Spontaneous
  Country: JP (occurrence: JP)
  Receive Date: 20140410
  Receipt Date: 20140605
  Transmission Date: 20141212
  Serious: Yes (Hospitalization)
  Sender: FDA-Public Use
  Company Number: JP-ELI_LILLY_AND_COMPANY-JP201404000486

PATIENT
  Age: 45 Year
  Sex: Female

DRUGS (2)
  1. FORTEO [Suspect]
     Indication: OSTEOPOROSIS
     Dosage: UNK
     Route: 058
     Dates: end: 20140330
  2. RHEUMATREX                         /00113801/ [Concomitant]
     Indication: RHEUMATIC DISORDER

REACTIONS (6)
  - Decreased appetite [Recovered/Resolved]
  - Pyrexia [Recovered/Resolved]
  - Malaise [Recovered/Resolved]
  - Genital infection female [Unknown]
  - Nausea [Recovered/Resolved]
  - Melaena [Recovered/Resolved]
